FAERS Safety Report 6925803-0 (Version None)
Quarter: 2010Q3

REPORT INFORMATION
  Report Type: 
  Country: None (occurrence: None)
  Receive Date: 20100816
  Receipt Date: 20100803
  Transmission Date: 20110219
  Serious: Yes (Hospitalization)
  Sender: FDA-Public Use
  Company Number: JP-ALLERGAN-1009831US

PATIENT
  Age: 49 Year
  Sex: Female
  Weight: 55 kg

DRUGS (6)
  1. ALESION TABLET [Suspect]
     Indication: PRURITUS
     Dosage: 20 MG, QD
     Route: 048
     Dates: start: 20100521, end: 20100702
  2. LECTISOL [Suspect]
     Indication: ACUTE FEBRILE NEUTROPHILIC DERMATOSIS
     Dosage: 100 MG, QD
     Route: 048
     Dates: start: 20100426, end: 20100702
  3. BIOTIN [Concomitant]
     Indication: PUSTULAR PSORIASIS
     Dosage: 2 MG, UNK
     Route: 048
     Dates: start: 20100514, end: 20100702
  4. BIOFERMIN [Concomitant]
     Indication: PUSTULAR PSORIASIS
     Dosage: 1 G, UNK
     Route: 048
     Dates: start: 20100514, end: 20100702
  5. GASTER D [Concomitant]
     Dosage: UNK
     Route: 048
     Dates: start: 20100415, end: 20100702
  6. LOXONIN [Concomitant]
     Indication: ARTHRALGIA
     Dosage: UNK
     Route: 048
     Dates: start: 20100528, end: 20100702

REACTIONS (1)
  - HEPATIC FUNCTION ABNORMAL [None]
